FAERS Safety Report 15820765 (Version 2)
Quarter: 2019Q1

REPORT INFORMATION
  Report Type: Spontaneous
  Country: US (occurrence: US)
  Receive Date: 20190114
  Receipt Date: 20190128
  Transmission Date: 20190417
  Serious: No
  Sender: FDA-Public Use
  Company Number: US-SA-2019SA007475

PATIENT
  Age: 61 Year
  Sex: Male
  Weight: 95 kg

DRUGS (18)
  1. CLARITINE [Concomitant]
     Active Substance: LORATADINE
     Dosage: 1 TAB, QD
     Route: 048
     Dates: start: 20170414
  2. EPINEPHRINE. [Concomitant]
     Active Substance: EPINEPHRINE
     Indication: ANAPHYLACTIC REACTION
     Dosage: 0.3 MG, PRN
     Route: 030
     Dates: start: 20170916
  3. ROBITUSSIN [MENTHOL] [Concomitant]
     Active Substance: MENTHOL
     Dosage: 1 DOSE, QD
     Route: 048
     Dates: start: 20140411
  4. VALACYCLOVIR [Concomitant]
     Active Substance: VALACYCLOVIR HYDROCHLORIDE
     Dosage: 1 TAB,  TID
     Route: 048
     Dates: start: 20181121
  5. HEPARIN [Concomitant]
     Active Substance: HEPARIN SODIUM
     Indication: FLUSHING
     Dosage: 100 U/ML
     Route: 042
     Dates: start: 20170916
  6. HYDROCHLOROTHIAZIDE. [Concomitant]
     Active Substance: HYDROCHLOROTHIAZIDE
     Dosage: 1 CAP QD
     Route: 048
     Dates: start: 20140411
  7. ALBUTEROL SULFATE. [Concomitant]
     Active Substance: ALBUTEROL SULFATE
     Dosage: UNK UNK, PRN
     Route: 055
     Dates: start: 20181113
  8. ACETYLCYSTEINE. [Concomitant]
     Active Substance: ACETYLCYSTEINE
     Dosage: 1 DOSE QD
     Route: 055
     Dates: start: 20170112
  9. LUMIZYME [Suspect]
     Active Substance: ALGLUCOSIDASE ALFA
     Indication: GLYCOGEN STORAGE DISORDER
     Dosage: 1800 MG, QOW
     Route: 041
     Dates: start: 20140414
  10. SODIUM CHLORIDE. [Concomitant]
     Active Substance: SODIUM CHLORIDE
     Indication: FLUSHING
     Dosage: UNK
     Route: 042
     Dates: start: 20170916
  11. STERILE WATER [Concomitant]
     Active Substance: WATER
     Dosage: 360 ML
     Dates: start: 20170916
  12. DILTIAZEM. [Concomitant]
     Active Substance: DILTIAZEM
     Dosage: 2 TAB, QD
     Route: 048
     Dates: start: 20170112
  13. LISINOPRIL. [Concomitant]
     Active Substance: LISINOPRIL
     Indication: FLUSHING
     Dosage: 1 TAB QD
     Route: 048
     Dates: start: 20140411
  14. ONE-A-DAY [CETIRIZINE HYDROCHLORIDE] [Concomitant]
     Dosage: 1 TAB, QD
     Route: 048
     Dates: start: 20180814
  15. NORMAL SALINE [Concomitant]
     Active Substance: SODIUM CHLORIDE
     Dosage: UNK
     Route: 042
     Dates: start: 20170916
  16. DIPHENHYDRAMINE. [Concomitant]
     Active Substance: DIPHENHYDRAMINE
     Indication: ANAPHYLACTIC REACTION
     Dosage: 50 MG/ML, PRN
     Route: 042
     Dates: start: 20170916
  17. PAROXETINE. [Concomitant]
     Active Substance: PAROXETINE
     Dosage: 1 TAB, QD
     Route: 048
     Dates: start: 20170112
  18. LUMIZYME [Suspect]
     Active Substance: ALGLUCOSIDASE ALFA
     Dosage: 1800 MG, QOW
     Route: 041
     Dates: start: 20140415

REACTIONS (4)
  - Nasopharyngitis [Not Recovered/Not Resolved]
  - Dyspnoea [Recovered/Resolved]
  - Sinusitis [Not Recovered/Not Resolved]
  - Influenza [Not Recovered/Not Resolved]

NARRATIVE: CASE EVENT DATE: 20181230
